FAERS Safety Report 14415424 (Version 3)
Quarter: 2022Q2

REPORT INFORMATION
  Report Type: Report from Study
  Country: BR (occurrence: BR)
  Receive Date: 20180121
  Receipt Date: 20220418
  Transmission Date: 20220720
  Serious: Yes (Life-Threatening)
  Sender: FDA-Public Use
  Company Number: PHHY2017BR119047

PATIENT
  Sex: Male
  Weight: 86 kg

DRUGS (2)
  1. COSENTYX [Suspect]
     Active Substance: SECUKINUMAB
     Indication: Psoriasis
     Dosage: 300 MG, QW (STARTED AROUND THE MIDDLE OF LAST YEAR)
     Route: 058
     Dates: start: 20170720
  2. FLUOXETINE HYDROCHLORIDE [Concomitant]
     Active Substance: FLUOXETINE HYDROCHLORIDE
     Indication: Product used for unknown indication
     Dosage: UNK
     Route: 065

REACTIONS (4)
  - Feeling abnormal [Unknown]
  - Malaise [Unknown]
  - Influenza [Unknown]
  - Dyspnoea [Recovered/Resolved]
